FAERS Safety Report 11584200 (Version 1)
Quarter: 2015Q4

REPORT INFORMATION
  Report Type: Spontaneous
  Country: US (occurrence: US)
  Receive Date: 20151001
  Receipt Date: 20151001
  Transmission Date: 20160304
  Serious: Yes (Hospitalization, Other)
  Sender: FDA-Public Use
  Company Number: US-ROCHE-644624

PATIENT
  Age: 52 Year
  Sex: Male
  Weight: 54.4 kg

DRUGS (10)
  1. RIBASPHERE [Suspect]
     Active Substance: RIBAVIRIN
     Indication: HEPATITIS C
     Route: 065
  2. SOMA [Concomitant]
     Active Substance: CARISOPRODOL
     Indication: INSOMNIA
     Route: 065
  3. PEGASYS [Suspect]
     Active Substance: PEGINTERFERON ALFA-2A
     Route: 065
  4. RIBAVIRIN. [Suspect]
     Active Substance: RIBAVIRIN
     Dosage: DIVIDED DOSE
     Route: 065
  5. METHADONE [Concomitant]
     Active Substance: METHADONE HYDROCHLORIDE
     Indication: BREAKTHROUGH PAIN
     Route: 065
  6. RIBAVIRIN. [Suspect]
     Active Substance: RIBAVIRIN
     Indication: HEPATITIS C
     Route: 065
     Dates: start: 2006, end: 2006
  7. AEROBID INHALER [Concomitant]
     Route: 065
  8. PEGASYS [Suspect]
     Active Substance: PEGINTERFERON ALFA-2A
     Indication: HEPATITIS C
     Dosage: FORM: PREFILLED SYRINGE
     Route: 065
     Dates: start: 2006, end: 2006
  9. OXYCONTIN [Concomitant]
     Active Substance: OXYCODONE HYDROCHLORIDE
     Indication: PAIN
     Route: 065
  10. XANAX [Concomitant]
     Active Substance: ALPRAZOLAM
     Indication: ANXIETY
     Route: 065

REACTIONS (26)
  - Pyrexia [Recovered/Resolved]
  - Swollen tongue [Not Recovered/Not Resolved]
  - Palpitations [Not Recovered/Not Resolved]
  - Arrhythmia [Unknown]
  - Musculoskeletal pain [Unknown]
  - Rash papular [Not Recovered/Not Resolved]
  - Candida infection [Recovering/Resolving]
  - Homicidal ideation [Unknown]
  - Thirst [Unknown]
  - Decreased appetite [Unknown]
  - Arthralgia [Not Recovered/Not Resolved]
  - Diarrhoea [Unknown]
  - Weight decreased [Unknown]
  - Nausea [Not Recovered/Not Resolved]
  - Emphysema [Not Recovered/Not Resolved]
  - Back pain [Unknown]
  - Tongue disorder [Not Recovered/Not Resolved]
  - Vomiting [Unknown]
  - Conjunctivitis [Recovered/Resolved]
  - Aphthous ulcer [Recovered/Resolved]
  - Hyperhidrosis [Recovered/Resolved]
  - Blood glucose increased [Unknown]
  - Dehydration [Not Recovered/Not Resolved]
  - Suicidal ideation [Unknown]
  - Dysphonia [Not Recovered/Not Resolved]
  - Dyspnoea [Unknown]

NARRATIVE: CASE EVENT DATE: 2006
